FAERS Safety Report 17278409 (Version 1)
Quarter: 2020Q1

REPORT INFORMATION
  Report Type: Spontaneous
  Country: US (occurrence: US)
  Receive Date: 20191227
  Receipt Date: 20191227
  Transmission Date: 20200409
  Serious: No
  Sender: FDA-Public Use
  Company Number: None

PATIENT
  Sex: Female

DRUGS (1)
  1. IBRANCE [Suspect]
     Active Substance: PALBOCICLIB
     Indication: BREAST CANCER FEMALE
     Route: 048
     Dates: start: 20180719

REACTIONS (6)
  - Pain [None]
  - Gastrointestinal pain [None]
  - Dyspepsia [None]
  - Abdominal discomfort [None]
  - Oesophagitis [None]
  - Decreased appetite [None]
